FAERS Safety Report 7022338-4 (Version None)
Quarter: 2010Q3

REPORT INFORMATION
  Report Type: 
  Country: None (occurrence: None)
  Receive Date: 20100930
  Receipt Date: 20100922
  Transmission Date: 20110219
  Serious: Yes (Hospitalization)
  Sender: FDA-Public Use
  Company Number: GB-B.I. PHARMACEUTICALS,INC./RIDGEFIELD-2010-BP-10970YA

PATIENT
  Age: 89 Year
  Sex: Male

DRUGS (8)
  1. FLOMAX [Suspect]
     Indication: BENIGN PROSTATIC HYPERPLASIA
     Dosage: 400 MCG
     Route: 048
     Dates: start: 20100824, end: 20100910
  2. ALFACALCIDOL (ALFACALCIDOL) [Concomitant]
  3. HYOSCINE HBR HYT [Concomitant]
  4. CO-PROXAMOL (DEXTROPROPOXYPHENE) [Concomitant]
  5. FUROSEMIDE [Concomitant]
  6. LAXIDO (POTASSIUM CHLORIDE, SODIUM CHLORIDE, MACROGOL 3350, SODIUM HYD [Concomitant]
  7. LISINOPRIL [Concomitant]
  8. SODIUM BICARBONATE IN PLASTIC CONTAINER [Concomitant]

REACTIONS (1)
  - LIVER FUNCTION TEST ABNORMAL [None]
